FAERS Safety Report 19773380 (Version 2)
Quarter: 2022Q3

REPORT INFORMATION
  Report Type: Spontaneous
  Country: US (occurrence: US)
  Receive Date: 20210901
  Receipt Date: 20220906
  Transmission Date: 20221026
  Serious: Yes (Death)
  Sender: FDA-Public Use
  Company Number: US-MYLANLABS-2021M1056783

PATIENT
  Age: 64 Year
  Sex: Female
  Weight: 59.8 kg

DRUGS (25)
  1. VALSARTAN [Suspect]
     Active Substance: VALSARTAN
     Indication: Hypertension
     Dosage: UNK
     Route: 065
     Dates: start: 20171111, end: 20171217
  2. VALSARTAN AND HYDROCHLOROTHIAZIDE [Suspect]
     Active Substance: HYDROCHLOROTHIAZIDE\VALSARTAN
     Indication: Hypertension
     Dosage: UNK, 320-125 MG
     Route: 065
     Dates: start: 20160215, end: 20170712
  3. VALSARTAN AND HYDROCHLOROTHIAZIDE [Suspect]
     Active Substance: HYDROCHLOROTHIAZIDE\VALSARTAN
     Indication: Hypertension
     Dosage: UNK, 320-25 MG
     Route: 065
     Dates: start: 20140719, end: 20141014
  4. VALSARTAN AND HYDROCHLOROTHIAZIDE [Suspect]
     Active Substance: HYDROCHLOROTHIAZIDE\VALSARTAN
     Indication: Hypertension
     Dosage: UNK, 320-25 MG
     Route: 065
     Dates: start: 20121019, end: 20140419
  5. VALSARTAN [Suspect]
     Active Substance: VALSARTAN
     Indication: Hypertension
     Dosage: 320-125 MG
     Route: 065
     Dates: start: 20150410, end: 20151128
  6. VALSARTAN [Suspect]
     Active Substance: VALSARTAN
     Dosage: 320-125 MG
     Route: 065
     Dates: start: 20150125, end: 20150402
  7. VALSARTAN [Suspect]
     Active Substance: VALSARTAN
     Indication: Hypertension
     Dosage: UNK
     Route: 065
     Dates: start: 20180914, end: 20181231
  8. VALSARTAN [Suspect]
     Active Substance: VALSARTAN
     Dosage: UNK
     Route: 065
     Dates: start: 20180222, end: 20180731
  9. AZITHROMYCIN [Concomitant]
     Active Substance: AZITHROMYCIN
     Dosage: UNK, TAKE AS DIRECTED
     Route: 048
     Dates: start: 20190111
  10. BENZONATATE [Concomitant]
     Active Substance: BENZONATATE
     Dosage: 100 MILLIGRAM
     Route: 048
     Dates: start: 20190109
  11. BENZONATATE [Concomitant]
     Active Substance: BENZONATATE
     Dosage: UNK, TID, PRN
     Route: 048
     Dates: start: 20190109
  12. COMPAZINE [Concomitant]
     Active Substance: PROCHLORPERAZINE MALEATE
     Dosage: 10 MILLIGRAM, Q6H, PRN
     Route: 048
     Dates: start: 20181107
  13. DEXAMETHASONE SODIUM PHOSPHATE [Concomitant]
     Active Substance: DEXAMETHASONE SODIUM PHOSPHATE
     Dosage: ONCE OVER 15 MINS IN NS 50 ML(3)AT THE RATE OF  200 ML/ HR
     Route: 042
     Dates: start: 20181109
  14. DIPHENHYDRAMINE HYDROCHLORIDE [Concomitant]
     Active Substance: DIPHENHYDRAMINE HYDROCHLORIDE
     Dosage: UNK, ONCE
     Route: 042
     Dates: start: 20181212
  15. DRONABINOL [Concomitant]
     Active Substance: DRONABINOL
     Dosage: 2.5 MILLIGRAM, BID
     Route: 048
     Dates: start: 20190116
  16. FAMOTIDINE [Concomitant]
     Active Substance: FAMOTIDINE
     Dosage: UNK, ONCE, (OF 20 MG/2ML)
     Route: 042
     Dates: start: 20181212
  17. ONDANSETRON HCL [Concomitant]
     Active Substance: ONDANSETRON HYDROCHLORIDE
     Dosage: 8 MILLIGRAM, ONCE, 15 MINS IN NS 50 ML (2) AT THE  RATE OF 200 ML/HR
     Route: 042
     Dates: start: 20181109
  18. ONDANSETRON HCL [Concomitant]
     Active Substance: ONDANSETRON HYDROCHLORIDE
     Dosage: 8 MILLIGRAM, Q8H, PRN
     Route: 048
     Dates: start: 20181107
  19. PACLITAXEL [Concomitant]
     Active Substance: PACLITAXEL
     Dosage: (AT 80 MG/RN2) ONCE OVER  60 MIS IN NS 250 ML (5) AT THE RATE OF 250 ML/HR
     Route: 042
     Dates: start: 20181212
  20. PEMBROLIZUMAB [Concomitant]
     Active Substance: PEMBROLIZUMAB
     Dosage: UNK, ONCE,  (100MG/4 ML)
     Route: 042
     Dates: start: 20190206
  21. RAMUCIRUMAB [Concomitant]
     Active Substance: RAMUCIRUMAB
     Dosage: UNK, ONCE (8 MG/ KG) OVER 60 MINS IN NS 250 ML RATE OF  250 ML/ HR
     Route: 042
     Dates: start: 20181212
  22. SODIUM CHLORIDE [Concomitant]
     Active Substance: SODIUM CHLORIDE
     Dosage: UNK, ONCE IN NS 500 ML (1)
     Route: 042
     Dates: start: 20181212
  23. CLOBETASOL PROPIONATE [Concomitant]
     Active Substance: CLOBETASOL PROPIONATE
     Dosage: UNK
     Route: 061
  24. SPIRONOLACTONE [Concomitant]
     Active Substance: SPIRONOLACTONE
     Dosage: 1 DOSAGE FORM, QD
     Route: 048
  25. VALSARTAN [Concomitant]
     Active Substance: VALSARTAN
     Dosage: 1 DOSAGE FORM, QD
     Route: 048

REACTIONS (2)
  - Lung neoplasm malignant [Fatal]
  - Adenocarcinoma gastric [Fatal]

NARRATIVE: CASE EVENT DATE: 20181001
